FAERS Safety Report 10025255 (Version 2)
Quarter: 2014Q1

REPORT INFORMATION
  Report Type: Report from Study
  Country: US (occurrence: US)
  Receive Date: 20140320
  Receipt Date: 20140325
  Transmission Date: 20141002
  Serious: Yes (Hospitalization)
  Sender: FDA-Public Use
  Company Number: US-GLAXOSMITHKLINE-A1026525C

PATIENT
  Age: 15 Year
  Sex: Male
  Weight: 61.8 kg

DRUGS (12)
  1. NELARABINE [Suspect]
     Indication: T-CELL TYPE ACUTE LEUKAEMIA
     Dosage: 650MGM2 CYCLIC
     Route: 042
     Dates: start: 20121207
  2. MERCAPTOPURINE [Suspect]
     Indication: T-CELL TYPE ACUTE LEUKAEMIA
     Dosage: 75MGM2 CYCLIC
     Route: 048
  3. VINCRISTINE SULFATE [Suspect]
     Indication: T-CELL TYPE ACUTE LEUKAEMIA
     Dosage: 1.5MGM2 CYCLIC
     Route: 042
  4. METHOTREXATE [Suspect]
     Indication: T-CELL TYPE ACUTE LEUKAEMIA
     Dosage: 20MGM2 CYCLIC
     Route: 048
  5. METHOTREXATE [Suspect]
     Indication: T-CELL TYPE ACUTE LEUKAEMIA
     Dosage: 15MG CYCLIC
     Route: 037
  6. DEXAMETHASONE [Suspect]
     Indication: T-CELL TYPE ACUTE LEUKAEMIA
     Dosage: 3MGM2 CYCLIC
     Route: 048
  7. CYCLOPHOSPHAMIDE [Suspect]
     Indication: T-CELL TYPE ACUTE LEUKAEMIA
  8. CYTARABINE [Suspect]
     Indication: T-CELL TYPE ACUTE LEUKAEMIA
  9. PEG-ASPARAGINASE [Suspect]
     Indication: T-CELL TYPE ACUTE LEUKAEMIA
     Dates: end: 20131231
  10. DAUNORUBICIN [Suspect]
     Indication: T-CELL TYPE ACUTE LEUKAEMIA
  11. DOXORUBICIN HYDROCHLORIDE [Suspect]
     Indication: T-CELL TYPE ACUTE LEUKAEMIA
  12. PREDNISONE [Suspect]
     Indication: T-CELL TYPE ACUTE LEUKAEMIA

REACTIONS (4)
  - Hypotension [Recovered/Resolved]
  - Oral pain [Recovered/Resolved]
  - Rectal ulcer [Recovered/Resolved]
  - Oropharyngeal pain [Unknown]
